FAERS Safety Report 8288682-8 (Version None)
Quarter: 2012Q2

REPORT INFORMATION
  Report Type: 
  Country: None (occurrence: None)
  Receive Date: 20120417
  Receipt Date: 20120404
  Transmission Date: 20120825
  Serious: Yes (Life-Threatening, Other)
  Sender: FDA-Public Use
  Company Number: SE-AMGEN-SWESP2012021938

PATIENT
  Age: 55 Year
  Sex: Male

DRUGS (7)
  1. OMEPRAZOLE [Concomitant]
     Dosage: UNK
  2. ORUDIS [Concomitant]
     Dosage: UNK
  3. FOLACIN                            /00198401/ [Concomitant]
     Dosage: 5 MG, UNK
  4. TIPAROL [Concomitant]
     Dosage: UNK
  5. ENBREL [Suspect]
     Indication: RHEUMATOID ARTHRITIS
     Dosage: 50 MG, WEEKLY
     Route: 058
     Dates: start: 20091001, end: 20120101
  6. METHOTREXATE SODIUM [Suspect]
     Indication: RHEUMATOID ARTHRITIS
     Dosage: 20 MG, WEEKLY
     Dates: start: 20091001, end: 20120101
  7. ACETAMINOPHEN [Concomitant]
     Dosage: UNK

REACTIONS (1)
  - MALIGNANT RESPIRATORY TRACT NEOPLASM [None]
